FAERS Safety Report 18121143 (Version 1)
Quarter: 2020Q3

REPORT INFORMATION
  Report Type: Spontaneous
  Country: US (occurrence: US)
  Receive Date: 20200806
  Receipt Date: 20200806
  Transmission Date: 20201103
  Serious: No
  Sender: FDA-Public Use
  Company Number: US-FRESENIUS MEDICAL CARE RENAL THERAPIES GROUP-FMC-2007-000808

PATIENT
  Age: 69 Year
  Sex: Male

DRUGS (13)
  1. DELFLEX WITH DEXTROSE 4.25% LOW MAGNESIUM LOW CALCIUM [Suspect]
     Active Substance: CALCIUM CHLORIDE\DEXTROSE\MAGNESIUM CHLORIDE\SODIUM CHLORIDE\SODIUM LACTATE
     Indication: END STAGE RENAL DISEASE
     Dosage: FILL VOLUME 1800 ML, 4 EXCHANGES, NO LAST FILL, NO DAYTIME EXCHANGE, DWELL TIME 1.5 HOURS
     Route: 033
  2. QVAR [Concomitant]
     Active Substance: BECLOMETHASONE DIPROPIONATE
  3. COLACE [Concomitant]
     Active Substance: DOCUSATE SODIUM
  4. DELFLEX WITH DEXTROSE 2.5% LOW MAGNESIUM LOW CALCIUM [Suspect]
     Active Substance: CALCIUM CHLORIDE\DEXTROSE\MAGNESIUM CHLORIDE\SODIUM CHLORIDE\SODIUM LACTATE
     Indication: END STAGE RENAL DISEASE
     Dosage: FILL VOLUME 1800 ML, 4 EXCHANGES, NO LAST FILL, NO DAYTIME EXCHANGE, DWELL TIME 1.5 HOURS
     Route: 033
  5. LASIX [Concomitant]
     Active Substance: FUROSEMIDE
  6. DELFLEX WITH DEXTROSE 1.5% LOW MAGNESIUM LOW CALCIUM [Suspect]
     Active Substance: CALCIUM CHLORIDE\DEXTROSE\MAGNESIUM CHLORIDE\SODIUM CHLORIDE\SODIUM LACTATE
     Indication: END STAGE RENAL DISEASE
     Dosage: FILL VOLUME 1800 ML, 4 EXCHANGES, NO LAST FILL, NO DAYTIME EXCHANGE, DWELL TIME 1.5 HOURS
     Route: 033
  7. CALCIUM ACETATE. [Concomitant]
     Active Substance: CALCIUM ACETATE
  8. ATORVASTATIN [Concomitant]
     Active Substance: ATORVASTATIN
  9. HYDRALAZINE [Concomitant]
     Active Substance: HYDRALAZINE HYDROCHLORIDE
  10. OMEPRAZOLE. [Concomitant]
     Active Substance: OMEPRAZOLE
  11. AMLODIPINE [Concomitant]
     Active Substance: AMLODIPINE BESYLATE
  12. EYE DROPS [Concomitant]
     Active Substance: UNSPECIFIED INGREDIENT
  13. METOPROLOL. [Concomitant]
     Active Substance: METOPROLOL

REACTIONS (1)
  - Inguinal hernia [Recovering/Resolving]
